FAERS Safety Report 8420207-6 (Version None)
Quarter: 2012Q2

REPORT INFORMATION
  Report Type: 
  Country: None (occurrence: None)
  Receive Date: 20120607
  Receipt Date: 20120606
  Transmission Date: 20120825
  Serious: Yes (Death, Hospitalization)
  Sender: FDA-Public Use
  Company Number: JP-B.I. PHARMACEUTICALS,INC./RIDGEFIELD-2012-BP-07460NB

PATIENT
  Sex: Male
  Weight: 80 kg

DRUGS (12)
  1. VERAPAMIL HCL [Concomitant]
     Indication: TACHYCARDIA
     Dosage: 80 MG
     Route: 048
     Dates: start: 20120208, end: 20120331
  2. NOVOLIN N [Concomitant]
     Dosage: 4 U
     Route: 065
     Dates: start: 20120324, end: 20120330
  3. CELEBREX [Concomitant]
     Indication: ANALGESIC THERAPY
     Dosage: 200 MG
     Route: 048
     Dates: start: 20120324, end: 20120331
  4. ALBUMINAR [Concomitant]
     Dosage: 100 ML
     Route: 065
     Dates: start: 20120324, end: 20120326
  5. MUCOSTA [Concomitant]
     Route: 048
     Dates: start: 20120324, end: 20120330
  6. PRADAXA [Suspect]
     Indication: ANTICOAGULANT THERAPY
     Dosage: 220 MG
     Route: 048
     Dates: start: 20120315, end: 20120327
  7. VENILON-I [Concomitant]
     Route: 065
     Dates: start: 20120322, end: 20120324
  8. NEOPHAGEN [Concomitant]
     Route: 065
     Dates: start: 20120304, end: 20120331
  9. LENDORMIN D TABLETS [Concomitant]
     Indication: INSOMNIA
     Dosage: 0.25 MG
     Route: 048
     Dates: start: 20120312, end: 20120322
  10. VANCOMYCIN HYDROCHLORIDE [Concomitant]
     Indication: STAPHYLOCOCCAL INFECTION
     Dosage: 2000 MG
     Route: 048
     Dates: start: 20120312, end: 20120319
  11. ARASENA-A [Concomitant]
     Indication: HERPES SIMPLEX
     Route: 065
     Dates: start: 20120315, end: 20120319
  12. ZOSYN [Concomitant]
     Dosage: 13.5 MG
     Route: 065
     Dates: start: 20120321, end: 20120331

REACTIONS (5)
  - RENAL FAILURE ACUTE [None]
  - MELAENA [None]
  - BACTERAEMIA [None]
  - HAEMORRHAGE [None]
  - HAEMATURIA [None]
